FAERS Safety Report 5294947-4 (Version None)
Quarter: 2007Q2

REPORT INFORMATION
  Report Type: 
  Country: None (occurrence: None)
  Receive Date: 20070412
  Receipt Date: 20060922
  Transmission Date: 20071010
  Serious: Yes (Hospitalization)
  Sender: FDA-Public Use
  Company Number: 200614772EU

PATIENT
  Age: 75 Year
  Sex: Male

DRUGS (9)
  1. NICORETTE [Suspect]
     Indication: TOBACCO WITHDRAWAL SYMPTOMS
     Route: 002
     Dates: start: 20060608, end: 20060609
  2. ELISOR [Concomitant]
     Indication: SMOKING CESSATION THERAPY
  3. DETENSIEL [Concomitant]
     Route: 048
     Dates: start: 20060608, end: 20060610
  4. NEXIUM [Concomitant]
     Route: 048
     Dates: start: 20060606, end: 20060619
  5. VOLTAREN [Concomitant]
     Route: 048
     Dates: start: 20060607, end: 20060619
  6. VENTOLIN AEROSOL [Concomitant]
     Dosage: 2PUFF PER DAY
  7. KARDEGIC [Concomitant]
     Route: 048
     Dates: start: 20060605
  8. NEOCODION [Concomitant]
     Dosage: 4UNIT PER DAY
     Route: 048
     Dates: start: 20060607, end: 20060619
  9. IMOVANE [Concomitant]

REACTIONS (14)
  - ANAPHYLACTOID REACTION [None]
  - ANGINA PECTORIS [None]
  - ARTERIOSPASM CORONARY [None]
  - CHEST PAIN [None]
  - ELECTROCARDIOGRAM REPOLARISATION ABNORMALITY [None]
  - ERYTHEMA [None]
  - HYPOTENSION [None]
  - LIP OEDEMA [None]
  - MALAISE [None]
  - NAUSEA [None]
  - PAIN IN EXTREMITY [None]
  - PRURITUS [None]
  - URTICARIA [None]
  - VERTIGO [None]
